FAERS Safety Report 17692617 (Version 1)
Quarter: 2020Q2

REPORT INFORMATION
  Report Type: Spontaneous
  Country: US (occurrence: US)
  Receive Date: 20200422
  Receipt Date: 20200422
  Transmission Date: 20200714
  Serious: Yes (Other)
  Sender: FDA-Public Use
  Company Number: US-PFIZER INC-2020153913

PATIENT
  Age: 56 Year
  Sex: Female
  Weight: 122.45 kg

DRUGS (3)
  1. SILDENAFIL CITRATE. [Suspect]
     Active Substance: SILDENAFIL CITRATE
     Dosage: 20 MG, 3X/DAY
     Route: 048
  2. XARELTO [Suspect]
     Active Substance: RIVAROXABAN
     Dosage: UNK
  3. REMODULIN [Suspect]
     Active Substance: TREPROSTINIL
     Dosage: 0.77 UG/KG, UNK
     Route: 041
     Dates: start: 20140730

REACTIONS (7)
  - Decreased appetite [Unknown]
  - Dyspnoea [Unknown]
  - Seasonal allergy [Unknown]
  - Infection [Unknown]
  - Nasopharyngitis [Unknown]
  - Haemorrhage [Unknown]
  - Cough [Unknown]

NARRATIVE: CASE EVENT DATE: 20200319
